FAERS Safety Report 4472824-6 (Version None)
Quarter: 2004Q4

REPORT INFORMATION
  Report Type: 
  Country: None (occurrence: None)
  Receive Date: 20041012
  Receipt Date: 20040927
  Transmission Date: 20050328
  Serious: No
  Sender: FDA-Public Use
  Company Number: 2004GB02316

PATIENT
  Age: 71 Year
  Sex: Female

DRUGS (5)
  1. CRESTOR [Suspect]
     Indication: LIPIDS INCREASED
     Dosage: 10 MG DAILY PO
     Route: 048
     Dates: start: 20031126, end: 20040823
  2. ASPIRIN [Concomitant]
  3. FRUSEMIDE [Concomitant]
  4. SPIRONOLACTONE [Concomitant]
  5. MULTI-VITAMINS [Concomitant]

REACTIONS (5)
  - CEREBROVASCULAR ACCIDENT [None]
  - FACIAL PARESIS [None]
  - FLUSHING [None]
  - MALAISE [None]
  - PAIN IN EXTREMITY [None]
